FAERS Safety Report 5535711-8 (Version None)
Quarter: 2007Q4

REPORT INFORMATION
  Report Type: 
  Country: None (occurrence: None)
  Receive Date: 20071204
  Receipt Date: 20071204
  Transmission Date: 20080405
  Serious: No
  Sender: FDA-Public Use
  Company Number: None

PATIENT
  Age: 17 Year
  Sex: Male
  Weight: 55.5 kg

DRUGS (1)
  1. VALPROIC ACID [Suspect]
     Indication: EPILEPSY
     Dosage: 8 ML -400 MG- TID OTHER
     Route: 050
     Dates: start: 20070118, end: 20070607

REACTIONS (4)
  - COMPLEX PARTIAL SEIZURES [None]
  - CONDITION AGGRAVATED [None]
  - PHARMACEUTICAL PRODUCT COMPLAINT [None]
  - THERAPEUTIC RESPONSE UNEXPECTED WITH DRUG SUBSTITUTION [None]
